FAERS Safety Report 15834595 (Version 1)
Quarter: 2019Q1

REPORT INFORMATION
  Report Type: Spontaneous
  Country: CN (occurrence: CN)
  Receive Date: 20190116
  Receipt Date: 20190116
  Transmission Date: 20190417
  Serious: Yes (Other)
  Sender: FDA-Public Use
  Company Number: CN-MYLANLABS-2019M1003709

PATIENT
  Sex: Female

DRUGS (19)
  1. CISPLATIN. [Suspect]
     Active Substance: CISPLATIN
     Indication: CHORIOCARCINOMA
     Dosage: AS PART OF THE TP/TE REGIMEN
     Route: 065
  2. BEVACIZUMAB. [Concomitant]
     Active Substance: BEVACIZUMAB
     Indication: PRODUCT USED FOR UNKNOWN INDICATION
     Route: 065
  3. VINCRISTINE [Suspect]
     Active Substance: VINCRISTINE
     Indication: CHORIOCARCINOMA
     Dosage: ADMINISTERED ON DAY 8 EVERY 14 DAYS AS PART OF THE EMA-CO REGIMEN
     Route: 042
  4. VINCRISTINE [Suspect]
     Active Substance: VINCRISTINE
     Dosage: AS PART OF THE FAEV REGIMEN
     Route: 065
  5. ETOPOSIDE. [Suspect]
     Active Substance: ETOPOSIDE
     Indication: CHORIOCARCINOMA
     Dosage: AS PART OF THE FAEV REGIMEN
     Route: 065
  6. METHOTREXATE. [Suspect]
     Active Substance: METHOTREXATE
     Dosage: ADMINISTERED ON DAY 1 EVERY 14 DAYS AS PART OF THE EMA-CO REGIMEN
  7. OXALIPLATIN. [Suspect]
     Active Substance: OXALIPLATIN
     Indication: CHORIOCARCINOMA
     Dosage: ON DAY 1 EVERY 14 DAYS AS A PART OF GOP REGIMEN
     Route: 042
  8. CYCLOPHOSPHAMIDE. [Suspect]
     Active Substance: CYCLOPHOSPHAMIDE
     Indication: CHORIOCARCINOMA
     Dosage: ADMINISTERED ON DAY 8 EVERY 14 DAYS AS PART OF THE EMA-CO REGIMEN
     Route: 042
  9. ETOPOSIDE. [Suspect]
     Active Substance: ETOPOSIDE
     Dosage: AS PART OF THE MBE REGIMEN
     Route: 065
  10. METHOTREXATE. [Suspect]
     Active Substance: METHOTREXATE
     Indication: CHORIOCARCINOMA
     Dosage: AS PART OF THE MBE REGIMEN
     Route: 065
  11. BLEOMYCIN [Suspect]
     Active Substance: BLEOMYCIN SULFATE
     Indication: CHORIOCARCINOMA
     Dosage: AS PART OF THE MBE REGIMEN
     Route: 065
  12. DACTINOMYCIN [Suspect]
     Active Substance: DACTINOMYCIN
     Indication: CHORIOCARCINOMA
     Dosage: ADMINISTERED ON DAY 1 AND DAY 2 EVERY 14 DAYS AS PART OF THE EMA-CO REGIMEN
     Route: 042
  13. PACLITAXEL. [Suspect]
     Active Substance: PACLITAXEL
     Indication: CHORIOCARCINOMA
     Dosage: AS PART OF THE TP/TE REGIMEN
     Route: 065
  14. PACLITAXEL. [Suspect]
     Active Substance: PACLITAXEL
     Dosage: ON DAY 1 EVERY 14 DAYS AS A PART OF GOP REGIMEN
     Route: 042
  15. GEMCITABINE [Suspect]
     Active Substance: GEMCITABINE\GEMCITABINE HYDROCHLORIDE
     Indication: CHORIOCARCINOMA
     Dosage: ON DAY 1 EVERY 14 DAYS AS A PART OF GOP REGIMEN
     Route: 042
  16. ETOPOSIDE. [Suspect]
     Active Substance: ETOPOSIDE
     Dosage: 100 MILLIGRAM/SQ. METER
     Route: 042
  17. ETOPOSIDE. [Suspect]
     Active Substance: ETOPOSIDE
     Dosage: AS PART OF THE TP/TE REGIMEN
     Route: 065
  18. DACTINOMYCIN [Suspect]
     Active Substance: DACTINOMYCIN
     Dosage: 003 UNK
     Route: 042
  19. FLOXURIDINE. [Suspect]
     Active Substance: FLOXURIDINE
     Indication: CHORIOCARCINOMA
     Dosage: AS PART OF THE FAEV REGIMEN
     Route: 065

REACTIONS (2)
  - Neutropenia [Unknown]
  - Drug ineffective [Unknown]
